FAERS Safety Report 7662003-3 (Version None)
Quarter: 2011Q3

REPORT INFORMATION
  Report Type: 
  Country: None (occurrence: None)
  Receive Date: 20110805
  Receipt Date: 20101129
  Transmission Date: 20111222
  Serious: No
  Sender: FDA-Public Use
  Company Number: US-ABBOTT-10P-163-0688821-00

PATIENT
  Sex: Female
  Weight: 113.5 kg

DRUGS (12)
  1. ASPIRIN [Concomitant]
     Indication: PRODUCT USED FOR UNKNOWN INDICATION
  2. ATIVAN [Concomitant]
     Indication: ANXIETY
  3. DARVOCET-N 50 [Concomitant]
     Indication: BACK PAIN
  4. MULTI-VITAMIN [Concomitant]
     Indication: VITAMIN SUPPLEMENTATION
  5. NIASPAN [Suspect]
     Indication: BLOOD CHOLESTEROL INCREASED
     Dates: start: 20101011
  6. TOPAMAX [Suspect]
     Indication: MIGRAINE
     Dates: start: 20101108
  7. PROTONIX [Concomitant]
     Indication: GASTROOESOPHAGEAL REFLUX DISEASE
  8. FLEXERIL [Concomitant]
     Indication: BACK PAIN
  9. LIDODERM [Concomitant]
     Indication: BACK PAIN
     Dosage: PAIN PATCHES
  10. ESGIC [Concomitant]
     Indication: MIGRAINE
  11. LEVOTHYROXINE SODIUM [Suspect]
     Indication: HYPOTHYROIDISM
     Dates: start: 20101011
  12. PAXIL [Concomitant]
     Indication: DEPRESSION

REACTIONS (3)
  - NAUSEA [None]
  - HEADACHE [None]
  - FLUSHING [None]
